FAERS Safety Report 5139513-6 (Version None)
Quarter: 2006Q4

REPORT INFORMATION
  Report Type: 
  Country: None (occurrence: None)
  Receive Date: 20061025
  Receipt Date: 20061025
  Transmission Date: 20070319
  Serious: Yes (Hospitalization)
  Sender: FDA-Public Use
  Company Number: None

PATIENT
  Age: 63 Year
  Sex: Male
  Weight: 98.4306 kg

DRUGS (3)
  1. METOPROLOL TARTRATE [Suspect]
     Dosage: 50MG  PO  QD
     Route: 048
  2. ATENOLOL [Suspect]
     Dosage: 50MG  PO  QD
  3. FUROSEMIDE [Suspect]

REACTIONS (5)
  - ASTHENIA [None]
  - DIZZINESS [None]
  - HYPOTENSION [None]
  - MALAISE [None]
  - POLYURIA [None]
